FAERS Safety Report 12138772 (Version 1)
Quarter: 2016Q1

REPORT INFORMATION
  Report Type: Spontaneous
  Country: US (occurrence: US)
  Receive Date: 20160302
  Receipt Date: 20160302
  Transmission Date: 20160526
  Serious: No
  Sender: FDA-Public Use
  Company Number: US-BAYER-2016-040696

PATIENT
  Age: 64 Year
  Sex: Female
  Weight: 54.42 kg

DRUGS (1)
  1. LOTRIMIN ULTRA ANTIFUNGAL [Suspect]
     Active Substance: BUTENAFINE HYDROCHLORIDE
     Indication: TINEA PEDIS
     Dosage: 1 DF, PRN
     Route: 061
     Dates: start: 201512, end: 20160228

REACTIONS (1)
  - Drug ineffective [None]
